FAERS Safety Report 6705237-4 (Version None)
Quarter: 2010Q2

REPORT INFORMATION
  Report Type: 
  Country: None (occurrence: None)
  Receive Date: 20100430
  Receipt Date: 20100114
  Transmission Date: 20101027
  Serious: No
  Sender: FDA-Public Use
  Company Number: US-ASTRAZENECA-2010SE01799

PATIENT
  Age: 87 Year
  Sex: Female

DRUGS (4)
  1. NEXIUM [Suspect]
     Indication: GASTROOESOPHAGEAL REFLUX DISEASE
     Route: 048
  2. CLONIDINE [Concomitant]
     Indication: HYPERTENSION
  3. DIAZEPAM [Concomitant]
     Indication: NERVOUSNESS
  4. VITAMINS [Concomitant]

REACTIONS (2)
  - HEART RATE INCREASED [None]
  - RASH [None]
